FAERS Safety Report 9016461 (Version 1)
Quarter: 2013Q1

REPORT INFORMATION
  Report Type: Spontaneous
  Country: US (occurrence: US)
  Receive Date: 20130116
  Receipt Date: 20130116
  Transmission Date: 20140127
  Serious: No
  Sender: FDA-Public Use
  Company Number: US-009507513-1301USA006426

PATIENT
  Age: 50 Year
  Sex: Male

DRUGS (4)
  1. SAPHRIS [Suspect]
     Indication: BIPOLAR DISORDER
     Dosage: 10 MG, QD
     Route: 060
  2. LAMICTAL [Concomitant]
  3. LITHIUM [Concomitant]
  4. SEROQUEL [Concomitant]

REACTIONS (2)
  - Fatigue [Recovered/Resolved]
  - Hallucination [Recovered/Resolved]
